FAERS Safety Report 10257243 (Version 1)
Quarter: 2014Q2

REPORT INFORMATION
  Report Type: Spontaneous
  Country: US (occurrence: None)
  Receive Date: 20140623
  Receipt Date: 20140623
  Transmission Date: 20141212
  Serious: Yes (Death, Hospitalization, Other)
  Sender: FDA-Public Use
  Company Number: None

PATIENT
  Age: 75 Year
  Sex: Male
  Weight: 77.11 kg

DRUGS (1)
  1. AVASTIN [Suspect]
     Indication: BRAIN NEOPLASM
     Dates: start: 20140529

REACTIONS (6)
  - Fall [None]
  - Colonic abscess [None]
  - Large intestine perforation [None]
  - Gastric operation [None]
  - Convulsion [None]
  - Unevaluable event [None]
